FAERS Safety Report 9405451 (Version 1)
Quarter: 2013Q3

REPORT INFORMATION
  Report Type: Spontaneous
  Country: NO (occurrence: NO)
  Receive Date: 20130717
  Receipt Date: 20130717
  Transmission Date: 20140515
  Serious: Yes (Other)
  Sender: FDA-Public Use
  Company Number: NO-TEVA-418361ISR

PATIENT
  Sex: Female

DRUGS (12)
  1. METHOTREXATE [Suspect]
     Indication: OFF LABEL USE
     Route: 065
  2. METHOTREXATE [Suspect]
     Indication: CRYOGLOBULINAEMIA
  3. METHOTREXATE [Suspect]
     Indication: HYPERSENSITIVITY VASCULITIS
  4. CYCLOSPORIN [Suspect]
     Indication: CRYOGLOBULINAEMIA
     Route: 065
  5. CYCLOSPORIN [Suspect]
     Indication: HYPERSENSITIVITY VASCULITIS
  6. CYCLOSPORIN [Suspect]
     Indication: LEUKOPENIA
  7. MABTHERA [Suspect]
     Indication: RHEUMATOID ARTHRITIS
     Route: 065
     Dates: start: 201003
  8. MABTHERA [Suspect]
     Indication: CRYOGLOBULINAEMIA
     Dosage: GIVEN AFTER 2 MONTHS FROM THE EVENT
     Route: 065
  9. AZATHIOPRINE [Suspect]
     Indication: HYPERSENSITIVITY VASCULITIS
     Route: 065
  10. AZATHIOPRINE [Suspect]
     Indication: CRYOGLOBULINAEMIA
  11. PREDNISOLONE [Concomitant]
     Route: 065
  12. PREDNISOLONE [Concomitant]
     Route: 065

REACTIONS (5)
  - Neutropenia [Recovered/Resolved]
  - Polyneuropathy [Recovering/Resolving]
  - Hypoaesthesia [Unknown]
  - Paraesthesia [Unknown]
  - Back pain [Unknown]
